FAERS Safety Report 14318424 (Version 1)
Quarter: 2017Q4

REPORT INFORMATION
  Report Type: Report from Study
  Country: CA (occurrence: CA)
  Receive Date: 20171222
  Receipt Date: 20171222
  Transmission Date: 20180321
  Serious: Yes (Other)
  Sender: FDA-Public Use
  Company Number: CA-GLAXOSMITHKLINE-CA2017GSK197720

PATIENT
  Age: 48 Year
  Sex: Female

DRUGS (11)
  1. TELMISARTAN. [Suspect]
     Active Substance: TELMISARTAN
     Indication: PRODUCT USED FOR UNKNOWN INDICATION
  2. TRAZODONE [Concomitant]
     Active Substance: TRAZODONE HYDROCHLORIDE
  3. CYMBALTA [Concomitant]
     Active Substance: DULOXETINE HYDROCHLORIDE
  4. ENBREL [Concomitant]
     Active Substance: ETANERCEPT
  5. DICLOFENAC SODIUM. [Suspect]
     Active Substance: DICLOFENAC SODIUM
     Indication: PRODUCT USED FOR UNKNOWN INDICATION
  6. FOLIC [Concomitant]
     Active Substance: FOLIC ACID
  7. COSENTYX [Suspect]
     Active Substance: SECUKINUMAB
     Indication: ANKYLOSING SPONDYLITIS
     Dosage: 150 MG, WE
     Route: 058
     Dates: start: 20171205
  8. SIMPONI [Concomitant]
     Active Substance: GOLIMUMAB
  9. METHOTREXATE. [Concomitant]
     Active Substance: METHOTREXATE
  10. IBUPROFEN. [Concomitant]
     Active Substance: IBUPROFEN
  11. MYLAN PANTOPRAZOLE [Concomitant]

REACTIONS (3)
  - Uveitis [Unknown]
  - Eye pain [Unknown]
  - Ocular hyperaemia [Unknown]

NARRATIVE: CASE EVENT DATE: 20171208
